FAERS Safety Report 11083010 (Version 5)
Quarter: 2016Q1

REPORT INFORMATION
  Report Type: Report from Study
  Country: GB (occurrence: GB)
  Receive Date: 20150501
  Receipt Date: 20160108
  Transmission Date: 20160525
  Serious: Yes (Death, Hospitalization)
  Sender: FDA-Public Use
  Company Number: GB-EISAI MEDICAL RESEARCH-E7080-01431-CLI-GB

PATIENT
  Age: 55 Year
  Sex: Male
  Weight: 99.9 kg

DRUGS (14)
  1. GLICLAZIDE [Concomitant]
     Active Substance: GLICLAZIDE
  2. MORPHINE SULFATE/NALTREXONE HYDROCHLORIDE [Concomitant]
     Active Substance: MORPHINE SULFATE\NALTREXONE HYDROCHLORIDE
  3. EVEROLIMUS [Concomitant]
     Active Substance: EVEROLIMUS
     Indication: METASTATIC RENAL CELL CARCINOMA
     Route: 048
     Dates: start: 20130107, end: 20130113
  4. LENVATINIB [Suspect]
     Active Substance: LENVATINIB
     Indication: METASTATIC RENAL CELL CARCINOMA
     Route: 048
     Dates: start: 20130107, end: 20130113
  5. LENVATINIB [Suspect]
     Active Substance: LENVATINIB
     Route: 048
     Dates: start: 20140118, end: 20140211
  6. LENVATINIB [Suspect]
     Active Substance: LENVATINIB
     Route: 048
     Dates: start: 20140425, end: 20150429
  7. EVEROLIMUS [Concomitant]
     Active Substance: EVEROLIMUS
     Route: 048
     Dates: start: 20130115, end: 20130327
  8. EVEROLIMUS [Concomitant]
     Active Substance: EVEROLIMUS
     Route: 048
     Dates: start: 20140425
  9. LENVATINIB [Suspect]
     Active Substance: LENVATINIB
     Route: 048
     Dates: start: 20130115, end: 20130327
  10. LENVATINIB [Suspect]
     Active Substance: LENVATINIB
     Route: 048
     Dates: start: 20140228, end: 20140404
  11. EVEROLIMUS [Concomitant]
     Active Substance: EVEROLIMUS
     Route: 048
     Dates: start: 20140118, end: 20140211
  12. EVEROLIMUS [Concomitant]
     Active Substance: EVEROLIMUS
     Route: 048
     Dates: start: 20140228, end: 20140404
  13. LENVATINIB [Suspect]
     Active Substance: LENVATINIB
     Route: 048
     Dates: start: 20130405, end: 20140110
  14. EVEROLIMUS [Concomitant]
     Active Substance: EVEROLIMUS
     Route: 048
     Dates: start: 20130405, end: 20140110

REACTIONS (2)
  - Pyrexia [Recovered/Resolved]
  - Myocardial infarction [Fatal]

NARRATIVE: CASE EVENT DATE: 20140110
